FAERS Safety Report 12780491 (Version 3)
Quarter: 2016Q4

REPORT INFORMATION
  Report Type: Spontaneous
  Country: JP (occurrence: JP)
  Receive Date: 20160926
  Receipt Date: 20161004
  Transmission Date: 20170207
  Serious: Yes (Life-Threatening, Other)
  Sender: FDA-Public Use
  Company Number: PHJP2016JP018665

PATIENT
  Age: 9 Year
  Sex: Female
  Weight: 37 kg

DRUGS (29)
  1. METHYLPREDNISOLONE. [Concomitant]
     Active Substance: METHYLPREDNISOLONE
     Dosage: 1000 MG, QD
     Route: 042
     Dates: start: 20160618, end: 20160620
  2. TEGRETOL [Suspect]
     Active Substance: CARBAMAZEPINE
     Dosage: 200 MG, BID
     Route: 050
     Dates: start: 20160604, end: 20160617
  3. INTRALIPOS [Concomitant]
     Active Substance: SOYBEAN OIL
     Indication: NUTRITIONAL SUPPLEMENTATION
     Dosage: 100 ML, QD
     Route: 042
     Dates: start: 20160606, end: 20160606
  4. INTRALIPOS [Concomitant]
     Active Substance: SOYBEAN OIL
     Dosage: 100 ML, BID
     Route: 042
     Dates: start: 20160607, end: 20160607
  5. VEEN D [Concomitant]
     Active Substance: CALCIUM CHLORIDE\DEXTROSE\POTASSIUM CHLORIDE\SODIUM ACETATE\SODIUM CHLORIDE
     Dosage: 500 ML, QID
     Route: 042
     Dates: start: 20160608, end: 20160611
  6. HEPARIN [Concomitant]
     Active Substance: HEPARIN SODIUM
     Indication: PROPHYLAXIS
     Dosage: 20 ML, QD
     Route: 042
     Dates: start: 20160526, end: 20160530
  7. PN TWIN [Concomitant]
     Indication: NUTRITIONAL SUPPLEMENTATION
     Dosage: 1000 ML, QD
     Route: 042
     Dates: start: 20160506, end: 20160607
  8. VEEN D [Concomitant]
     Active Substance: CALCIUM CHLORIDE\DEXTROSE\POTASSIUM CHLORIDE\SODIUM ACETATE\SODIUM CHLORIDE
     Indication: PRODUCT USED FOR UNKNOWN INDICATION
     Dosage: 500 ML, QD TO QID
     Route: 042
     Dates: start: 20160525, end: 20160606
  9. MYSTAN [Suspect]
     Active Substance: CLOBAZAM
     Indication: CONVULSION PROPHYLAXIS
     Dosage: 4 MG, BID
     Route: 050
     Dates: start: 20160602, end: 20160603
  10. TRICLORYL [Concomitant]
     Active Substance: TRICLOFOS SODIUM
     Indication: INSOMNIA
     Dosage: 10 MG, QD TO BID
     Route: 050
     Dates: start: 20160527, end: 20160604
  11. OTSUKA MV [Concomitant]
     Indication: NUTRITIONAL SUPPLEMENTATION
     Dosage: 0.75 DF, QD
     Route: 042
     Dates: start: 20160606, end: 20160609
  12. PN-TWIN NO. 2 [Concomitant]
     Indication: NUTRITIONAL SUPPLEMENTATION
     Dosage: 1100 ML, QD
     Route: 042
     Dates: start: 20160607, end: 20160607
  13. TEGRETOL [Suspect]
     Active Substance: CARBAMAZEPINE
     Indication: CONVULSION PROPHYLAXIS
     Dosage: 140 MG, BID
     Route: 050
     Dates: start: 20160601, end: 20160603
  14. SOLACET F [Concomitant]
     Indication: PRODUCT USED FOR UNKNOWN INDICATION
     Dosage: 500 ML, QD
     Route: 042
     Dates: start: 20160525, end: 20160526
  15. METHYLPREDNISOLONE. [Concomitant]
     Active Substance: METHYLPREDNISOLONE
     Indication: LIMBIC ENCEPHALITIS
     Dosage: 1000 MG, QD
     Route: 042
     Dates: start: 20160526, end: 20160530
  16. HEPARIN [Concomitant]
     Active Substance: HEPARIN SODIUM
     Dosage: 20 ML, QD
     Route: 042
     Dates: start: 20160603, end: 20160606
  17. HEPAFLUSH [Concomitant]
     Active Substance: HEPARIN SODIUM
     Indication: THROMBOSIS
     Dosage: 10 ML, QID
     Route: 042
     Dates: start: 20160525, end: 20160618
  18. VENOGLOBULIN [Concomitant]
     Active Substance: HUMAN IMMUNOGLOBULIN G
     Dosage: 3 DF, QD
     Route: 042
     Dates: start: 20160608, end: 20160612
  19. FOSPHENYTOIN [Concomitant]
     Active Substance: FOSPHENYTOIN\FOSPHENYTOIN SODIUM
     Indication: PROPHYLAXIS
     Dosage: 300 MG, QD (BID ON 03 JUN 2016)
     Route: 042
     Dates: start: 20160602, end: 20160606
  20. WYPAX [Concomitant]
     Active Substance: LORAZEPAM
     Indication: INSOMNIA
     Dosage: 0.5 MG, QD
     Route: 050
     Dates: start: 20160526, end: 20160614
  21. FOSPHENYTOIN SODIUM. [Concomitant]
     Active Substance: FOSPHENYTOIN SODIUM
     Indication: CONVULSION PROPHYLAXIS
     Dosage: UNK
     Route: 065
     Dates: start: 20160601, end: 20160607
  22. MYSTAN [Suspect]
     Active Substance: CLOBAZAM
     Dosage: 5 MG, BID
     Route: 050
     Dates: start: 20160604, end: 20160621
  23. CEFOTAXIME [Suspect]
     Active Substance: CEFOTAXIME SODIUM
     Indication: INFECTION
     Dosage: 2 G, QID
     Route: 042
     Dates: start: 20160610, end: 20160617
  24. ROZEREM [Concomitant]
     Active Substance: RAMELTEON
     Indication: INSOMNIA
     Dosage: 8 MG, QD
     Route: 050
     Dates: start: 20160529, end: 20160614
  25. OMEPRAZOLE. [Concomitant]
     Active Substance: OMEPRAZOLE
     Indication: PROPHYLAXIS
     Dosage: 20 MG, BID
     Route: 042
     Dates: start: 20160526, end: 20160611
  26. SOLACET F [Concomitant]
     Dosage: 500 ML, QD
     Route: 042
     Dates: start: 20160607, end: 20160607
  27. METHYLPREDNISOLONE. [Concomitant]
     Active Substance: METHYLPREDNISOLONE
     Dosage: 1000 MG, QD
     Route: 042
     Dates: start: 20160603, end: 20160607
  28. VOLVIX [Concomitant]
     Indication: NUTRITIONAL SUPPLEMENTATION
     Dosage: 1.5 ML, QD
     Route: 042
     Dates: start: 20160606, end: 20160609
  29. VENOGLOBULIN [Concomitant]
     Active Substance: HUMAN IMMUNOGLOBULIN G
     Indication: LIMBIC ENCEPHALITIS
     Dosage: 4 DF, QD
     Route: 042
     Dates: start: 20160531, end: 20160601

REACTIONS (25)
  - Pyrexia [Unknown]
  - Drug reaction with eosinophilia and systemic symptoms [Unknown]
  - Dry skin [Unknown]
  - Pruritus [Unknown]
  - Stevens-Johnson syndrome [Recovered/Resolved]
  - Endocarditis [Unknown]
  - Complex partial seizures [Unknown]
  - Papule [Unknown]
  - Staphylococcal infection [Unknown]
  - Apnoea [Unknown]
  - Bacterial infection [Unknown]
  - Limb discomfort [Unknown]
  - Hypertension [Unknown]
  - Urinary tract infection [Unknown]
  - Proteus test positive [Unknown]
  - Screaming [Unknown]
  - Constipation [Unknown]
  - Escherichia test positive [Unknown]
  - Pyuria [Unknown]
  - Disturbance in attention [Unknown]
  - Aggression [Unknown]
  - Blister [Unknown]
  - Limbic encephalitis [Unknown]
  - Condition aggravated [Unknown]
  - Device related infection [Unknown]

NARRATIVE: CASE EVENT DATE: 20160602
